FAERS Safety Report 8612993-7 (Version None)
Quarter: 2012Q3

REPORT INFORMATION
  Report Type: 
  Country: None (occurrence: None)
  Receive Date: 20120822
  Receipt Date: 20120816
  Transmission Date: 20120928
  Serious: Yes (Hospitalization, Other)
  Sender: FDA-Public Use
  Company Number: GB-PFIZER INC-2012191550

PATIENT
  Age: 49 Year
  Sex: Male
  Weight: 63 kg

DRUGS (14)
  1. FLUTICASONE PROPIONATE/SALMETEROL [Concomitant]
     Indication: CHRONIC OBSTRUCTIVE PULMONARY DISEASE
     Dosage: UNK
     Route: 055
  2. METHADONE HYDROCHLORIDE [Concomitant]
     Indication: DEPENDENCE
     Dosage: 90 ML, 1X/DAY
     Route: 065
  3. IBUPROFEN [Suspect]
     Indication: PAIN
     Dosage: 400 MG, 3X/DAY
     Route: 048
     Dates: end: 20120508
  4. TIOTROPIUM [Concomitant]
     Route: 055
  5. PARACETAMOL [Concomitant]
     Indication: PAIN
     Dosage: 1 G, 1X/DAY IN THE MORNING
     Route: 065
  6. SALBUTAMOL [Concomitant]
     Indication: CHRONIC OBSTRUCTIVE PULMONARY DISEASE
     Dosage: 2 DF, PM
     Route: 055
  7. PEGINTERFERON ALFA-2B [Concomitant]
     Indication: HEPATITIS C
     Dosage: 80 UG, 1X/DAY
     Route: 058
     Dates: start: 20120115, end: 20120509
  8. DARBEPOETIN ALFA [Concomitant]
     Indication: ANAEMIA
     Route: 065
     Dates: start: 20120329, end: 20120509
  9. TIOTROPIUM [Concomitant]
     Indication: CHRONIC OBSTRUCTIVE PULMONARY DISEASE
     Dosage: IN THE MORNING
     Route: 065
  10. ARANESP [Concomitant]
     Indication: ANAEMIA
     Dosage: 80 UG, WEEKLY
     Route: 058
     Dates: start: 20120329, end: 20120509
  11. FLUTICASONE PROPIONATE/SALMETEROL [Concomitant]
     Dosage: 500 DF, 2X/DAY
  12. TELAPREVIR [Suspect]
     Indication: HEPATITIS C
     Dosage: DOSAGE FORM: TABLET
     Route: 048
     Dates: start: 20120226, end: 20120509
  13. RIBAVIRIN [Concomitant]
     Indication: HEPATITIS C
     Dosage: 400 MG, 3X/DAY
     Route: 065
     Dates: start: 20120115, end: 20120509
  14. MIRTAZAPINE [Concomitant]
     Indication: DEPRESSION
     Dosage: 15 MG, 1X/DAY
     Route: 065

REACTIONS (15)
  - HAEMOGLOBIN DECREASED [None]
  - ANAEMIA [None]
  - POLLAKIURIA [None]
  - RENAL IMPAIRMENT [None]
  - LOWER RESPIRATORY TRACT INFECTION [None]
  - BLOOD CREATININE INCREASED [None]
  - BLOOD UREA INCREASED [None]
  - C-REACTIVE PROTEIN INCREASED [None]
  - DYSURIA [None]
  - FLANK PAIN [None]
  - URINARY TRACT INFECTION [None]
  - GLOMERULAR FILTRATION RATE DECREASED [None]
  - NEUTROPHIL COUNT INCREASED [None]
  - ESCHERICHIA TEST POSITIVE [None]
  - WHITE BLOOD CELL COUNT INCREASED [None]
